FAERS Safety Report 12927043 (Version 1)
Quarter: 2016Q4

REPORT INFORMATION
  Report Type: Spontaneous
  Country: CN (occurrence: CN)
  Receive Date: 20161108
  Receipt Date: 20161108
  Transmission Date: 20170207
  Serious: Yes (Other)
  Sender: FDA-Public Use
  Company Number: CN-ASTRAZENECA-2016SF16471

PATIENT
  Age: 30316 Day
  Sex: Male
  Weight: 60 kg

DRUGS (4)
  1. SHENKANG [Suspect]
     Active Substance: HERBALS
     Indication: RENAL FAILURE
     Route: 041
     Dates: start: 20160606, end: 20160618
  2. CEFOPERAZONE SODIUM AND TAZOBACTAM SODIUM [Suspect]
     Active Substance: CEFOPERAZONE\TAZOBACTAM SODIUM
     Indication: INFECTION
     Route: 041
     Dates: start: 20160607, end: 20160616
  3. TICAGRELOR [Suspect]
     Active Substance: TICAGRELOR
     Indication: PLATELET DISORDER
     Route: 048
     Dates: start: 20160602, end: 20160614
  4. SODIUM CHLORIDE. [Concomitant]
     Active Substance: SODIUM CHLORIDE
     Indication: MEDICATION DILUTION
     Route: 041
     Dates: start: 20160602, end: 20160618

REACTIONS (3)
  - Coagulopathy [Recovering/Resolving]
  - International normalised ratio increased [None]
  - Activated partial thromboplastin time prolonged [None]

NARRATIVE: CASE EVENT DATE: 20160614
